FAERS Safety Report 5214213-2 (Version None)
Quarter: 2007Q1

REPORT INFORMATION
  Report Type: 
  Country: None (occurrence: None)
  Receive Date: 20070122
  Receipt Date: 20070111
  Transmission Date: 20070707
  Serious: Yes (Other)
  Sender: FDA-Public Use
  Company Number: GB-JNJFOC-20061202814

PATIENT
  Age: 62 Year
  Sex: Female

DRUGS (4)
  1. TOPAMAX [Suspect]
     Indication: BIPOLAR DISORDER
     Route: 065
  2. MIRTAZAPINE [Concomitant]
  3. MIRTAZAPINE [Concomitant]
  4. PAROXETINE HCL [Concomitant]

REACTIONS (1)
  - MUSCLE DISORDER [None]
